FAERS Safety Report 18234636 (Version 2)
Quarter: 2020Q3

REPORT INFORMATION
  Report Type: Spontaneous
  Country: TH (occurrence: TH)
  Receive Date: 20200904
  Receipt Date: 20200916
  Transmission Date: 20201103
  Serious: Yes (Other)
  Sender: FDA-Public Use
  Company Number: NVSC2020TH239844

PATIENT
  Age: 59 Year
  Sex: Male
  Weight: 72.5 kg

DRUGS (10)
  1. ATORVASTATIN [Suspect]
     Active Substance: ATORVASTATIN
     Indication: PRODUCT USED FOR UNKNOWN INDICATION
     Dosage: 40 MG (1/2X1 AT BEDTIME (HS))
     Route: 048
  2. FUROSEMIDE. [Concomitant]
     Active Substance: FUROSEMIDE
     Indication: PRODUCT USED FOR UNKNOWN INDICATION
     Dosage: 40 MG (1?1/2?0 AFTER MEALS (PC))
     Route: 048
  3. SENOKOT [Concomitant]
     Active Substance: SENNOSIDES
     Indication: PRODUCT USED FOR UNKNOWN INDICATION
     Dosage: UNK (2?1 AT BEDTIME (HS))
     Route: 048
  4. LOSARTAN. [Concomitant]
     Active Substance: LOSARTAN
     Indication: PRODUCT USED FOR UNKNOWN INDICATION
     Dosage: 50 MG (1X1 AFTER MEALS (PC))
     Route: 048
  5. ADDI?K [Concomitant]
     Indication: PRODUCT USED FOR UNKNOWN INDICATION
     Dosage: UNK (750 2X2 AFTER MEALS (PC))
     Route: 048
  6. HCTZ [Concomitant]
     Active Substance: HYDROCHLOROTHIAZIDE
     Indication: POLYURIA
     Dosage: 25 MG (1X1 AFTER MEALS (PC) IF BW GREATER THAN 72 KG)
     Route: 048
  7. GALVUS [Suspect]
     Active Substance: VILDAGLIPTIN
     Indication: PRODUCT USED FOR UNKNOWN INDICATION
     Dosage: 50 MG (1X1 AFTER MEALS (PC))
     Route: 048
  8. WARFARIN [Concomitant]
     Active Substance: WARFARIN
     Indication: PRODUCT USED FOR UNKNOWN INDICATION
     Dosage: 2 MG (1X1 AT BEDTIME (HS) MONDAY?FRIDAY, 1/2X1 AT BEDTIME (HS) SATURDAY?SUNDAY)
     Route: 048
  9. BISOPROLOL [Concomitant]
     Active Substance: BISOPROLOL
     Indication: PRODUCT USED FOR UNKNOWN INDICATION
     Dosage: 2.5 MG (1/2X1 AFTER MEALS (PC))
     Route: 048
  10. GLICLAZIDE [Concomitant]
     Active Substance: GLICLAZIDE
     Indication: PRODUCT USED FOR UNKNOWN INDICATION
     Dosage: 60 MG (1X1 BEFORE MEALS (AC))
     Route: 048

REACTIONS (20)
  - Cardiac failure acute [Unknown]
  - Body temperature increased [Unknown]
  - Rhinorrhoea [Unknown]
  - Weight decreased [Unknown]
  - Alanine aminotransferase increased [Unknown]
  - Pain [Unknown]
  - Peripheral coldness [Unknown]
  - Haemoglobin decreased [Unknown]
  - Fatigue [Unknown]
  - Hypotension [Unknown]
  - Blood sodium decreased [Unknown]
  - Cough [Unknown]
  - Bronchitis [Unknown]
  - Cardiac failure [Unknown]
  - Crepitations [Unknown]
  - Cardiogenic shock [Unknown]
  - White blood cell count increased [Unknown]
  - Aspartate aminotransferase increased [Unknown]
  - Cardiomegaly [Unknown]
  - Blood urea increased [Unknown]
